FAERS Safety Report 9902937 (Version 2)
Quarter: 2014Q1

REPORT INFORMATION
  Report Type: Report from Study
  Country: US (occurrence: US)
  Receive Date: 20140217
  Receipt Date: 20140304
  Transmission Date: 20141002
  Serious: Yes (Other)
  Sender: FDA-Public Use
  Company Number: PHEH2014US002916

PATIENT
  Sex: Male

DRUGS (2)
  1. GLEEVEC [Suspect]
     Indication: CHRONIC MYELOID LEUKAEMIA
     Dosage: 400 MG, ONCE DAILY
     Route: 048
  2. GLEEVEC [Suspect]
     Dosage: 400 MG, ONCE DAILY
     Route: 048

REACTIONS (1)
  - Tendon injury [Unknown]
